FAERS Safety Report 8503835-9 (Version None)
Quarter: 2012Q3

REPORT INFORMATION
  Report Type: 
  Country: None (occurrence: None)
  Receive Date: 20120711
  Receipt Date: 20120629
  Transmission Date: 20120928
  Serious: Yes (Hospitalization)
  Sender: FDA-Public Use
  Company Number: US-BRISTOL-MYERS SQUIBB COMPANY-16728032

PATIENT
  Age: 69 Year
  Sex: Female
  Weight: 61 kg

DRUGS (16)
  1. NEURONTIN [Concomitant]
  2. SIMETHICONE [Concomitant]
  3. DOCUSATE SODIUM [Concomitant]
  4. OXYCODONE HCL [Concomitant]
  5. IPILIMUMAB [Suspect]
     Indication: MALIGNANT MELANOMA
     Dosage: COURSE:1. IND: 10MG/KG OVER 90 MINS Q3 WKS*4 DOSES, MAIN: 10MG/KG OVER 90 MINS Q12 WKS 24 36 48 60
     Route: 042
     Dates: start: 20120504, end: 20120504
  6. CALCIUM + VITAMIN D [Concomitant]
  7. CALCIUM CARBONATE [Concomitant]
  8. EUCERIN CREAM [Concomitant]
  9. LISINOPRIL AND HYDROCHLOROTHIAZIDE [Concomitant]
  10. MULTI-VITAMINS [Concomitant]
  11. SENNA-MINT WAF [Concomitant]
     Dosage: TABS
  12. AMBIEN [Concomitant]
  13. MIRALAX [Concomitant]
  14. ASPIRIN [Concomitant]
  15. LORAZEPAM [Concomitant]
  16. FERROUS SULFATE TAB [Concomitant]

REACTIONS (2)
  - NEUROPATHY PERIPHERAL [None]
  - HYPONATRAEMIA [None]
